FAERS Safety Report 24146382 (Version 5)
Quarter: 2024Q4

REPORT INFORMATION
  Report Type: Spontaneous
  Country: US (occurrence: US)
  Receive Date: 20240729
  Receipt Date: 20241022
  Transmission Date: 20250114
  Serious: No
  Sender: BRISTOL-MYERS SQUIBB COMPANY
  Company Number: US-BRISTOL-MYERS SQUIBB COMPANY-2024-119481

PATIENT
  Age: 70 Year
  Sex: Female
  Weight: 55.79 kg

DRUGS (3)
  1. POMALYST [Suspect]
     Active Substance: POMALIDOMIDE
     Indication: Plasma cell myeloma
     Route: 048
  2. PREDNISONE [Concomitant]
     Active Substance: PREDNISONE
     Indication: Sinusitis
     Route: 048
  3. CLINDAMYCIN HYDROCHLORIDE [Concomitant]
     Active Substance: CLINDAMYCIN HYDROCHLORIDE
     Indication: Sinusitis
     Route: 048

REACTIONS (8)
  - Sinusitis [Recovering/Resolving]
  - Fatigue [Recovering/Resolving]
  - COVID-19 [Unknown]
  - Brain fog [Unknown]
  - Pruritus [Unknown]
  - Rash [Unknown]
  - Burning sensation [Unknown]
  - Nausea [Recovering/Resolving]
